FAERS Safety Report 12683193 (Version 2)
Quarter: 2016Q3

REPORT INFORMATION
  Report Type: Report from Study
  Country: CZ (occurrence: CZ)
  Receive Date: 20160825
  Receipt Date: 20160901
  Transmission Date: 20161109
  Serious: Yes (Death, Other)
  Sender: FDA-Public Use
  Company Number: PHHY2016CZ104479

PATIENT
  Age: 80 Year
  Sex: Female

DRUGS (1)
  1. AFINITOR [Suspect]
     Active Substance: EVEROLIMUS
     Indication: BREAST CANCER
     Dosage: 10 MG, QD
     Route: 065
     Dates: start: 20150430, end: 20150630

REACTIONS (5)
  - Breast cancer [Fatal]
  - Osteonecrosis of jaw [Unknown]
  - General physical health deterioration [Unknown]
  - Fistula [Unknown]
  - Oncologic complication [Fatal]

NARRATIVE: CASE EVENT DATE: 20150625
